FAERS Safety Report 6885275-1 (Version None)
Quarter: 2010Q3

REPORT INFORMATION
  Report Type: 
  Country: None (occurrence: None)
  Receive Date: 20100729
  Receipt Date: 20100729
  Transmission Date: 20110219
  Serious: No
  Sender: FDA-Public Use
  Company Number: None

PATIENT
  Age: 57 Year
  Sex: Male
  Weight: 92.9874 kg

DRUGS (4)
  1. TOLVAPTAN - SAMSCA- 15MG OTSUKA [Suspect]
     Indication: HYPONATRAEMIA
     Dosage: 15MG ONCE PO
     Route: 048
     Dates: start: 20100517, end: 20100517
  2. TOLVAPTAN - SAMSCA- 15MG OTSUKA [Suspect]
     Indication: INAPPROPRIATE ANTIDIURETIC HORMONE SECRETION
     Dosage: 15MG ONCE PO
     Route: 048
     Dates: start: 20100517, end: 20100517
  3. CONIVAPTAN -VAPRISOL- 20MG ASTELLAS [Suspect]
     Indication: HYPONATRAEMIA
     Dosage: 20MG ONCE IV BOLUS
     Route: 040
     Dates: start: 20100516, end: 20100517
  4. CONIVAPTAN -VAPRISOL- 20MG ASTELLAS [Suspect]
     Indication: INAPPROPRIATE ANTIDIURETIC HORMONE SECRETION
     Dosage: 20MG ONCE IV BOLUS
     Route: 040
     Dates: start: 20100516, end: 20100517

REACTIONS (3)
  - FLUID OVERLOAD [None]
  - INCORRECT DOSE ADMINISTERED [None]
  - OEDEMA [None]
